FAERS Safety Report 9201425 (Version 4)
Quarter: 2013Q3

REPORT INFORMATION
  Report Type: Spontaneous
  Country: US (occurrence: US)
  Receive Date: 20130401
  Receipt Date: 20130709
  Transmission Date: 20140515
  Serious: No
  Sender: FDA-Public Use
  Company Number: US-PFIZER INC-2013103220

PATIENT
  Age: 59 Year
  Sex: Female
  Weight: 56.69 kg

DRUGS (3)
  1. LYRICA [Suspect]
     Indication: NEURALGIA
     Dosage: 75 MG, 2X/DAY
     Dates: end: 20130320
  2. MORPHINE SULFATE [Concomitant]
     Indication: NEURALGIA
     Dosage: 15 MG, EVERY 12 HOURS
     Route: 048
  3. PERCOCET [Concomitant]
     Indication: NEURALGIA
     Dosage: [OXYCODONE 5 MG]/[ ACETAMINOPHEN 325 MG], AS NEEDED
     Route: 048

REACTIONS (8)
  - Withdrawal syndrome [Not Recovered/Not Resolved]
  - Nausea [Not Recovered/Not Resolved]
  - Chills [Not Recovered/Not Resolved]
  - Gastrointestinal disorder [Not Recovered/Not Resolved]
  - Hyperhidrosis [Not Recovered/Not Resolved]
  - Parosmia [Not Recovered/Not Resolved]
  - Dysgeusia [Not Recovered/Not Resolved]
  - Neuralgia [Unknown]
